FAERS Safety Report 20599936 (Version 1)
Quarter: 2022Q1

REPORT INFORMATION
  Report Type: Spontaneous
  Country: DE (occurrence: DE)
  Receive Date: 20220316
  Receipt Date: 20220316
  Transmission Date: 20220424
  Serious: Yes (Other)
  Sender: FDA-Public Use
  Company Number: DE-AMGEN-DEUNI2022036952

PATIENT
  Age: 68 Year
  Sex: Male
  Weight: 51 kg

DRUGS (11)
  1. LEUCOVORIN [Suspect]
     Active Substance: LEUCOVORIN
     Indication: Colorectal cancer metastatic
     Dosage: 644 MILLIGRAM
     Route: 065
     Dates: start: 20190508
  2. LEUCOVORIN [Suspect]
     Active Substance: LEUCOVORIN
     Indication: Product used for unknown indication
     Dosage: 217 MILLIGRAM
     Route: 065
     Dates: start: 20191009
  3. IRINOTECAN [Suspect]
     Active Substance: IRINOTECAN
     Indication: Colorectal cancer metastatic
     Dosage: 231 MILLIGRAM
     Route: 065
     Dates: start: 20190508
  4. IRINOTECAN [Suspect]
     Active Substance: IRINOTECAN
     Indication: Product used for unknown indication
     Dosage: 232 MILLIGRAM
     Route: 065
     Dates: start: 20190522
  5. IRINOTECAN [Suspect]
     Active Substance: IRINOTECAN
     Dosage: 323 MILLIGRAM
     Route: 065
     Dates: start: 20190703
  6. IRINOTECAN [Suspect]
     Active Substance: IRINOTECAN
     Dosage: 217 MILLIGRAM
     Route: 065
     Dates: start: 20190828
  7. FLUOROURACIL [Suspect]
     Active Substance: FLUOROURACIL
     Indication: Product used for unknown indication
     Dosage: 3606 MILLIGRAM
     Route: 042
     Dates: start: 20190508
  8. FLUOROURACIL [Suspect]
     Active Substance: FLUOROURACIL
     Indication: Colorectal cancer metastatic
     Dosage: UNK MILLIGRAM
     Route: 040
     Dates: start: 20190522
  9. VECTIBIX [Suspect]
     Active Substance: PANITUMUMAB
     Indication: Colorectal cancer metastatic
     Dosage: 324 MILLIGRAM
     Route: 042
     Dates: start: 20190508
  10. BISOPROLOL [Concomitant]
     Active Substance: BISOPROLOL
     Indication: Hypertension
     Dosage: 1.25 MILLIGRAM, ONCE A DAY
     Route: 048
  11. RAMIPRIL [Concomitant]
     Active Substance: RAMIPRIL
     Indication: Hypertension
     Dosage: 2.5 MILLIGRAM, ONCE A DAY
     Route: 048

REACTIONS (1)
  - Oculomucocutaneous syndrome [Recovering/Resolving]

NARRATIVE: CASE EVENT DATE: 20190703
